FAERS Safety Report 25945386 (Version 1)
Quarter: 2025Q4

REPORT INFORMATION
  Report Type: Spontaneous
  Country: CN (occurrence: CN)
  Receive Date: 20251021
  Receipt Date: 20251021
  Transmission Date: 20260118
  Serious: Yes (Other)
  Sender: NOVARTIS
  Company Number: CN-002147023-NVSC2025CN159587

PATIENT
  Age: 49 Year
  Sex: Female
  Weight: 62 kg

DRUGS (4)
  1. CARBAMAZEPINE [Suspect]
     Active Substance: CARBAMAZEPINE
     Indication: Symptomatic treatment
     Dosage: 0.2 G, TID
     Route: 041
     Dates: start: 20250828, end: 20250918
  2. CARBAMAZEPINE [Suspect]
     Active Substance: CARBAMAZEPINE
     Dosage: 0.2 G, QD
     Route: 048
     Dates: start: 20250821, end: 20250826
  3. CARBAMAZEPINE [Suspect]
     Active Substance: CARBAMAZEPINE
     Dosage: 0.2 G, BID
     Route: 048
     Dates: start: 20250826, end: 20250828
  4. CARBAMAZEPINE [Suspect]
     Active Substance: CARBAMAZEPINE
     Dosage: 0.2 G, QD
     Route: 048
     Dates: start: 20250918

REACTIONS (9)
  - Tinnitus [Recovering/Resolving]
  - Hypoacusis [Recovering/Resolving]
  - Ataxia [Recovering/Resolving]
  - Rash [Recovering/Resolving]
  - Erythema [Unknown]
  - Pruritus [Unknown]
  - Drug hypersensitivity [Unknown]
  - Dyskinesia [Unknown]
  - Gait disturbance [Unknown]

NARRATIVE: CASE EVENT DATE: 20250913
